FAERS Safety Report 10249584 (Version 1)
Quarter: 2014Q2

REPORT INFORMATION
  Report Type: Spontaneous
  Country: US (occurrence: US)
  Receive Date: 20140620
  Receipt Date: 20140620
  Transmission Date: 20141212
  Serious: No
  Sender: FDA-Public Use
  Company Number: US-PFIZER INC-2014167930

PATIENT
  Age: 64 Year
  Sex: Female
  Weight: 95.24 kg

DRUGS (1)
  1. ATORVASTATIN CALCIUM [Suspect]
     Indication: BLOOD CHOLESTEROL INCREASED
     Dosage: 10MG DAILY IN EVENING
     Dates: start: 201402

REACTIONS (1)
  - Blood glucose increased [Unknown]
